FAERS Safety Report 9240318 (Version 1)
Quarter: 2013Q1

REPORT INFORMATION
  Report Type: Spontaneous
  Country: US (occurrence: None)
  Receive Date: 20121102
  Receipt Date: 20121102
  Transmission Date: 20140127
  Serious: Yes (Hospitalization)
  Sender: FDA-Public Use
  Company Number: 132309

PATIENT
  Age: 64 Year
  Sex: Male
  Weight: 50 kg

DRUGS (1)
  1. LEUCOVORIN CALCIUM FOR INJ. 50MG-BEDFORD LABS, INC. [Suspect]
     Dosage: BLINDED, INFORMATION WITHELD
     Dates: start: 20120306

REACTIONS (1)
  - Febrile neutropenia [None]
